FAERS Safety Report 9596693 (Version 1)
Quarter: 2013Q4

REPORT INFORMATION
  Report Type: Spontaneous
  Country: GB (occurrence: GB)
  Receive Date: 20131004
  Receipt Date: 20131004
  Transmission Date: 20140711
  Serious: Yes (Hospitalization)
  Sender: FDA-Public Use
  Company Number: GB-UCBSA-099090

PATIENT
  Age: 42 Year
  Sex: Female

DRUGS (1)
  1. CIMZIA [Suspect]
     Dosage: LOADING DOSE: 2 X 200MG
     Dates: start: 20130906

REACTIONS (2)
  - Arthralgia [Unknown]
  - Generalised oedema [Unknown]
